FAERS Safety Report 17145059 (Version 4)
Quarter: 2020Q1

REPORT INFORMATION
  Report Type: Spontaneous
  Country: US (occurrence: US)
  Receive Date: 20191212
  Receipt Date: 20200303
  Transmission Date: 20200409
  Serious: Yes (Other)
  Sender: FDA-Public Use
  Company Number: US-SA-2019SA342338

PATIENT
  Age: 62 Year
  Sex: Female
  Weight: 78 kg

DRUGS (2)
  1. DUPIXENT [Suspect]
     Active Substance: DUPILUMAB
     Indication: CHRONIC SINUSITIS
     Dosage: 300 MG, QOW
     Route: 058
     Dates: start: 20190801
  2. DUPIXENT [Suspect]
     Active Substance: DUPILUMAB
     Indication: ASTHMA

REACTIONS (9)
  - Cataract nuclear [Unknown]
  - Eye irritation [Unknown]
  - Eye pain [Unknown]
  - Cataract [Unknown]
  - Eyelid oedema [Unknown]
  - Vision blurred [Unknown]
  - Dermatochalasis [Unknown]
  - Swelling of eyelid [Unknown]
  - Urticaria [Unknown]

NARRATIVE: CASE EVENT DATE: 20191007
